FAERS Safety Report 23127181 (Version 1)
Quarter: 2023Q4

REPORT INFORMATION
  Report Type: Report from Study
  Country: JP (occurrence: JP)
  Receive Date: 20231030
  Receipt Date: 20231030
  Transmission Date: 20240110
  Serious: Yes (Other)
  Sender: FDA-Public Use
  Company Number: JP-TAKEDA-2023TJP013722

PATIENT
  Age: 71 Year
  Sex: Male
  Weight: 60 kg

DRUGS (4)
  1. PANITUMUMAB [Suspect]
     Active Substance: PANITUMUMAB
     Indication: Adenocarcinoma of colon
     Dosage: 360 MILLIGRAM
     Route: 065
     Dates: start: 20210301, end: 20210301
  2. PANITUMUMAB [Suspect]
     Active Substance: PANITUMUMAB
     Dosage: 310 MILLIGRAM
     Route: 065
     Dates: start: 20210426, end: 20210426
  3. IRINOTECAN [Suspect]
     Active Substance: IRINOTECAN
     Indication: Adenocarcinoma of colon
     Dosage: 250 MILLIGRAM
     Route: 065
     Dates: start: 20210301, end: 20210301
  4. IRINOTECAN [Suspect]
     Active Substance: IRINOTECAN
     Dosage: 140 MILLIGRAM
     Route: 065
     Dates: start: 20210426, end: 20210426

REACTIONS (11)
  - Neutrophil count decreased [Unknown]
  - Peripheral sensory neuropathy [Unknown]
  - Malaise [Unknown]
  - Constipation [Not Recovered/Not Resolved]
  - Diarrhoea [Not Recovered/Not Resolved]
  - Fatigue [Recovering/Resolving]
  - Nausea [Unknown]
  - Decreased appetite [Recovering/Resolving]
  - Dry skin [Recovering/Resolving]
  - Paronychia [Not Recovered/Not Resolved]
  - Stomatitis [Unknown]
